FAERS Safety Report 5012363-7 (Version None)
Quarter: 2006Q2

REPORT INFORMATION
  Report Type: 
  Country: None (occurrence: None)
  Receive Date: 20060414
  Receipt Date: 20051228
  Transmission Date: 20061013
  Serious: No
  Sender: FDA-Public Use
  Company Number: 2005SP004549

PATIENT
  Age: 58 Year
  Sex: Male

DRUGS (2)
  1. LUNESTA [Suspect]
     Indication: INSOMNIA
     Dosage: 3 MG
     Dates: start: 20051001
  2. TOPROL-XL [Concomitant]

REACTIONS (1)
  - INSOMNIA [None]
